FAERS Safety Report 4394410-9 (Version None)
Quarter: 2004Q3

REPORT INFORMATION
  Report Type: 
  Country: None (occurrence: None)
  Receive Date: 20040712
  Receipt Date: 20040316
  Transmission Date: 20050211
  Serious: Yes (Hospitalization)
  Sender: FDA-Public Use
  Company Number: 200411064FR

PATIENT
  Age: 77 Year
  Sex: Female

DRUGS (4)
  1. KETEK [Suspect]
     Route: 048
     Dates: start: 20040224
  2. LESCOL [Suspect]
     Route: 048
  3. COTAREG [Suspect]
     Route: 048
  4. AMBROXOL [Concomitant]
     Route: 048
     Dates: start: 20040224

REACTIONS (1)
  - ISCHAEMIC STROKE [None]
